FAERS Safety Report 24299108 (Version 3)
Quarter: 2024Q4

REPORT INFORMATION
  Report Type: Report from Study
  Country: CA (occurrence: CA)
  Receive Date: 20240909
  Receipt Date: 20241205
  Transmission Date: 20250115
  Serious: Yes (Other)
  Sender: VERTEX
  Company Number: CA-VERTEX PHARMACEUTICALS-2024-014056

PATIENT
  Sex: Female
  Weight: 53 kg

DRUGS (14)
  1. TRIKAFTA [Suspect]
     Active Substance: ELEXACAFTOR\IVACAFTOR\TEZACAFTOR
     Indication: Cystic fibrosis
     Dosage: DAILY
     Route: 048
     Dates: start: 20220628, end: 202401
  2. TRIKAFTA [Suspect]
     Active Substance: ELEXACAFTOR\IVACAFTOR\TEZACAFTOR
     Indication: Cystic fibrosis lung
     Dosage: UNKNOWN DOSAGE REGIMEN
     Route: 048
     Dates: start: 202407
  3. NUVARING [Concomitant]
     Active Substance: ETHINYL ESTRADIOL\ETONOGESTREL
     Indication: Contraception
     Dosage: 14 UNIT MONTHLY
     Route: 067
     Dates: start: 20141110
  4. VITAMIN D [Concomitant]
     Active Substance: VITAMIN D NOS
     Indication: Cystic fibrosis lung
     Dosage: DAILY
     Route: 048
     Dates: start: 20150326
  5. CREON [Concomitant]
     Active Substance: PANCRELIPASE AMYLASE\PANCRELIPASE LIPASE\PANCRELIPASE PROTEASE
     Indication: Pancreatic failure
     Dosage: 50,000
     Route: 048
     Dates: start: 20141104
  6. AZITHROMYCIN [Concomitant]
     Active Substance: AZITHROMYCIN
     Indication: Prophylaxis
     Dosage: DAILY
     Route: 048
     Dates: start: 20150630
  7. PREVACID [Concomitant]
     Active Substance: LANSOPRAZOLE
     Indication: Gastrooesophageal reflux disease
     Dosage: DAILY
     Route: 048
     Dates: start: 20150630
  8. SODIUM BICARBONATE\SODIUM CHLORIDE [Concomitant]
     Active Substance: SODIUM BICARBONATE\SODIUM CHLORIDE
     Indication: Nasal polyps
     Dosage: 120 ML PER NOSTRIL, PRN
     Route: 045
     Dates: start: 20150723
  9. GRAVOL [Concomitant]
     Active Substance: DIMENHYDRINATE
     Dosage: 50 MILLIGRAM, PRN
     Route: 048
     Dates: start: 20220111
  10. ZOFRAN [Concomitant]
     Active Substance: ONDANSETRON HYDROCHLORIDE
     Dosage: PRN
     Route: 048
     Dates: start: 20220111
  11. ALBUTEROL [Concomitant]
     Active Substance: ALBUTEROL
     Indication: Cystic fibrosis lung
     Dosage: UNK
     Dates: start: 20191024
  12. BREO ELLIPTA [Concomitant]
     Active Substance: FLUTICASONE FUROATE\VILANTEROL TRIFENATATE
     Indication: Cystic fibrosis lung
     Dosage: 25/100 MCG DAILY
     Dates: start: 20201015
  13. PULMOZYME [Concomitant]
     Active Substance: DORNASE ALFA
     Indication: Cystic fibrosis lung
     Dosage: UNK
     Dates: start: 20150106, end: 20230720
  14. VITAMIN E [Concomitant]
     Active Substance: .ALPHA.-TOCOPHEROL
     Dosage: UNK
     Route: 048
     Dates: start: 20150630

REACTIONS (2)
  - Suicidal ideation [Not Recovered/Not Resolved]
  - Depressed mood [Not Recovered/Not Resolved]

NARRATIVE: CASE EVENT DATE: 20240111
